FAERS Safety Report 7259998-9 (Version None)
Quarter: 2011Q1

REPORT INFORMATION
  Report Type: 
  Country: None (occurrence: None)
  Receive Date: 20110130
  Receipt Date: 20101015
  Transmission Date: 20110831
  Serious: No
  Sender: FDA-Public Use
  Company Number: US-ABBOTT-10P-163-0679085-00

PATIENT
  Age: 72 Year
  Sex: Female

DRUGS (8)
  1. HUMALOG [Concomitant]
     Indication: DIABETES MELLITUS
  2. ZETIA [Concomitant]
     Indication: BLOOD CHOLESTEROL ABNORMAL
  3. OXYCODONE [Concomitant]
     Indication: PAIN
  4. TRICOR [Concomitant]
     Indication: BLOOD CHOLESTEROL ABNORMAL
  5. HUMIRA [Suspect]
     Indication: RHEUMATOID ARTHRITIS
     Dates: start: 20100514, end: 20100831
  6. LANTUS [Concomitant]
     Indication: DIABETES MELLITUS
  7. ETODOLAC [Concomitant]
     Indication: ARTHRITIS
  8. VITAMIN D [Concomitant]
     Indication: PRODUCT USED FOR UNKNOWN INDICATION

REACTIONS (2)
  - INJECTION SITE RASH [None]
  - URTICARIA [None]
